FAERS Safety Report 13079998 (Version 2)
Quarter: 2017Q1

REPORT INFORMATION
  Report Type: Spontaneous
  Country: IT (occurrence: IT)
  Receive Date: 20170103
  Receipt Date: 20170104
  Transmission Date: 20170428
  Serious: Yes (Other)
  Sender: FDA-Public Use
  Company Number: IT-TEVA-724730ACC

PATIENT
  Age: 33 Year
  Sex: Male
  Weight: 80 kg

DRUGS (3)
  1. MORFINA CLORIDRATO S.A.L.F. - S.A.L.F. SPA LABORATORIO FARMACOLOGICO [Suspect]
     Active Substance: MORPHINE HYDROCHLORIDE
     Indication: POSTOPERATIVE ANALGESIA
     Dosage: 6.2 MILLIGRAM DAILY;
     Route: 042
     Dates: start: 20161214, end: 20161214
  2. TORA-DOL - 30 MG/ML SOLUZIONE INIETTABILE RECORDATI INDUSTRIA CHIMICA [Concomitant]
     Active Substance: KETOROLAC TROMETHAMINE
     Indication: PRODUCT USED FOR UNKNOWN INDICATION
     Dosage: 30 MG
     Route: 042
     Dates: start: 20161214, end: 20161214
  3. CEFAZOLINA TEVA - 1 G POLVERE E SOLVENTE PER SOLUZIONE INIETTABILE [Suspect]
     Active Substance: CEFAZOLIN SODIUM
     Indication: PROPHYLAXIS
     Dosage: 4 GRAM DAILY;
     Route: 042
     Dates: start: 20161214, end: 20161214

REACTIONS (2)
  - Laryngeal oedema [Recovering/Resolving]
  - Pruritus [Recovering/Resolving]

NARRATIVE: CASE EVENT DATE: 20161214
